FAERS Safety Report 20180078 (Version 2)
Quarter: 2022Q1

REPORT INFORMATION
  Report Type: Spontaneous
  Country: US (occurrence: US)
  Receive Date: 20211214
  Receipt Date: 20220103
  Transmission Date: 20220423
  Serious: No
  Sender: FDA-Public Use
  Company Number: US-TEVA-2021-US-1986522

PATIENT
  Sex: Female

DRUGS (1)
  1. TOLTERODINE TARTRATE [Suspect]
     Active Substance: TOLTERODINE TARTRATE
     Indication: Hypertonic bladder
     Dosage: 4 MILLIGRAM DAILY; 1 CAPSULE A DAY
     Route: 065

REACTIONS (3)
  - Drug ineffective [Unknown]
  - Renal disorder [Unknown]
  - Bladder pain [Unknown]
